FAERS Safety Report 5005916-3 (Version None)
Quarter: 2006Q2

REPORT INFORMATION
  Report Type: 
  Country: None (occurrence: None)
  Receive Date: 20060517
  Receipt Date: 20060517
  Transmission Date: 20061013
  Serious: No
  Sender: FDA-Public Use
  Company Number: None

PATIENT
  Age: 23 Year
  Sex: Female
  Weight: 63.5036 kg

DRUGS (2)
  1. PAMELOR [Suspect]
     Dates: start: 19940901, end: 19950101
  2. VERELAN [Suspect]
     Dates: start: 19940901, end: 19950101

REACTIONS (1)
  - HEADACHE [None]
